FAERS Safety Report 9346737 (Version 3)
Quarter: 2013Q3

REPORT INFORMATION
  Report Type: Spontaneous
  Country: FR (occurrence: FR)
  Receive Date: 20130613
  Receipt Date: 20130730
  Transmission Date: 20140515
  Serious: Yes (Death)
  Sender: FDA-Public Use
  Company Number: FR-TEVA-411890ISR

PATIENT
  Age: 84 Year
  Sex: Female

DRUGS (12)
  1. FUROSEMIDE TEVA 40 MG [Suspect]
     Dosage: 40 MILLIGRAM DAILY;
     Dates: start: 20130115, end: 20130524
  2. FUROSEMIDE TEVA 40 MG [Suspect]
     Dosage: 80 MILLIGRAM DAILY;
     Dates: start: 20130524
  3. FUROSEMIDE TEVA 40 MG [Suspect]
     Dosage: 40 MILLIGRAM DAILY;
     Dates: start: 20130510
  4. PARACETAMOL [Concomitant]
  5. COUMADINE [Concomitant]
     Indication: ARRHYTHMIA
  6. LERCAN 10 [Concomitant]
     Dosage: 10 MILLIGRAM DAILY; 10 MG
     Dates: start: 20130531
  7. LODOZ [Concomitant]
     Dosage: 10MG/6.25 MG
  8. LORAZEPAM MYLAN 2.5 [Concomitant]
     Dosage: 2.5 MILLIGRAM DAILY; IN THE EVENING
     Dates: start: 20130531
  9. RENUTRYL BOOSTER [Concomitant]
  10. TEMESTA [Concomitant]
     Indication: SLEEP DISORDER
     Dosage: IN THE EVENING
  11. DIFFU K [Concomitant]
     Dosage: 1 DOSAGE FORMS DAILY;
     Route: 048
     Dates: start: 20130531
  12. TRANSIPEG 5.9G [Concomitant]
     Dosage: 2 DOSAGE FORMS DAILY;
     Dates: start: 20130531

REACTIONS (6)
  - Cardiac failure [Fatal]
  - Somnolence [Unknown]
  - Tremor [Unknown]
  - Mobility decreased [Unknown]
  - Asthenia [Unknown]
  - Sleep phase rhythm disturbance [Unknown]
